FAERS Safety Report 18564934 (Version 1)
Quarter: 2020Q4

REPORT INFORMATION
  Report Type: Spontaneous
  Country: CA (occurrence: CA)
  Receive Date: 20201201
  Receipt Date: 20201201
  Transmission Date: 20210114
  Serious: Yes (Other)
  Sender: FDA-Public Use
  Company Number: CA-PFIZER INC-2020469536

PATIENT
  Age: 76 Year
  Sex: Male

DRUGS (14)
  1. AZARGA [Concomitant]
     Active Substance: BRINZOLAMIDE\TIMOLOL MALEATE
     Dosage: UNK
  2. METONIA [Concomitant]
     Active Substance: METOCLOPRAMIDE
     Dosage: UNK
  3. CALCIUM [Concomitant]
     Active Substance: CALCIUM
     Dosage: UNK
  4. CRESTOR [Concomitant]
     Active Substance: ROSUVASTATIN CALCIUM
     Dosage: UNK
  5. CODEINE [Concomitant]
     Active Substance: CODEINE
     Dosage: UNK, AS NEEDED
  6. AZOPT [Concomitant]
     Active Substance: BRINZOLAMIDE
     Dosage: UNK
  7. GLUCOSAMINE [Concomitant]
     Active Substance: GLUCOSAMINE
     Dosage: UNK
  8. VITAMIN E [Concomitant]
     Active Substance: .ALPHA.-TOCOPHEROL
     Dosage: UNK
  9. DAURISMO [Suspect]
     Active Substance: GLASDEGIB
     Dosage: 100 MG, 1X/DAY
     Dates: start: 20201103
  10. ONDANSETRON [Concomitant]
     Active Substance: ONDANSETRON
     Dosage: UNK
  11. VALSARTAN HCT [Concomitant]
     Active Substance: HYDROCHLOROTHIAZIDE\VALSARTAN
     Dosage: UNK
  12. VITAMIN D3 [Concomitant]
     Active Substance: CHOLECALCIFEROL
     Dosage: UNK
  13. ASA [Concomitant]
     Active Substance: ASPIRIN
     Dosage: 81 MG
  14. SYNTHROID [Concomitant]
     Active Substance: LEVOTHYROXINE SODIUM
     Dosage: UNK

REACTIONS (3)
  - Haemoglobin decreased [Unknown]
  - White blood cell count decreased [Unknown]
  - Blood count abnormal [Unknown]
